FAERS Safety Report 18535921 (Version 2)
Quarter: 2021Q2

REPORT INFORMATION
  Report Type: Spontaneous
  Country: JP (occurrence: JP)
  Receive Date: 20201123
  Receipt Date: 20210608
  Transmission Date: 20210717
  Serious: Yes (Other)
  Sender: FDA-Public Use
  Company Number: JP-ASTELLAS-2020JP018135

PATIENT
  Sex: Female

DRUGS (3)
  1. ETIZOLAM [Concomitant]
     Active Substance: ETIZOLAM
     Indication: PRODUCT USED FOR UNKNOWN INDICATION
     Dosage: UNK UNK, UNKNOWN FREQ.
     Route: 048
  2. INFLUENZA VACCINE [Suspect]
     Active Substance: INFLUENZA VIRUS VACCINE
     Indication: PRODUCT USED FOR UNKNOWN INDICATION
     Dosage: UNK UNK, UNKNOWN FREQ.
     Route: 065
     Dates: start: 2019, end: 2019
  3. BETANIS [Suspect]
     Active Substance: MIRABEGRON
     Indication: POLLAKIURIA
     Dosage: 50 MG, ONCE DAILY, AFTER BREAKFAST
     Route: 048

REACTIONS (17)
  - Drug ineffective [Unknown]
  - Diabetes mellitus [Unknown]
  - Weight decreased [Recovering/Resolving]
  - Decreased appetite [Recovering/Resolving]
  - Nausea [Recovering/Resolving]
  - Limb discomfort [Unknown]
  - Tremor [Unknown]
  - Pain in extremity [Recovering/Resolving]
  - Rhinitis allergic [Unknown]
  - Nightmare [Unknown]
  - Mental disorder [Unknown]
  - Vomiting [Recovering/Resolving]
  - Pyrexia [Unknown]
  - Blood pressure increased [Unknown]
  - Anxiety [Unknown]
  - Fall [Recovering/Resolving]
  - Uterine prolapse [Unknown]

NARRATIVE: CASE EVENT DATE: 2019
